FAERS Safety Report 19459759 (Version 1)
Quarter: 2021Q2

REPORT INFORMATION
  Report Type: Spontaneous
  Country: BR (occurrence: BR)
  Receive Date: 20210624
  Receipt Date: 20210624
  Transmission Date: 20210717
  Serious: Yes (Other)
  Sender: FDA-Public Use
  Company Number: BR-TRAVERE THERAPEUTICS, INC.-2021RTN00105

PATIENT
  Age: 37 Day
  Sex: Male

DRUGS (1)
  1. CHOLBAM [Suspect]
     Active Substance: CHOLIC ACID
     Route: 048

REACTIONS (1)
  - Colitis [Recovered/Resolved]
